FAERS Safety Report 13697192 (Version 1)
Quarter: 2017Q2

REPORT INFORMATION
  Report Type: Report from Study
  Country: US (occurrence: US)
  Receive Date: 20170628
  Receipt Date: 20170628
  Transmission Date: 20170830
  Serious: Yes (Other)
  Sender: FDA-Public Use
  Company Number: US-ROCHE-1956256

PATIENT

DRUGS (1)
  1. ALTEPLASE [Suspect]
     Active Substance: ALTEPLASE
     Indication: THROMBOLYSIS
     Dosage: 0.9MG/KG BODY WEIGHT, WITH A MAXIMUM DOSE OF 90 MG
     Route: 042

REACTIONS (1)
  - Thalamus haemorrhage [Unknown]
